FAERS Safety Report 8241400-1 (Version None)
Quarter: 2012Q1

REPORT INFORMATION
  Report Type: 
  Country: None (occurrence: None)
  Receive Date: 20120328
  Receipt Date: 20120319
  Transmission Date: 20120608
  Serious: Yes (Hospitalization)
  Sender: FDA-Public Use
  Company Number: FR-ALEXION PHARMACEUTICALS INC.-A201101570

PATIENT
  Sex: Female

DRUGS (2)
  1. DICUMAROL [Concomitant]
  2. SOLIRIS [Suspect]
     Indication: PAROXYSMAL NOCTURNAL HAEMOGLOBINURIA
     Route: 042

REACTIONS (3)
  - ABDOMINAL PAIN [None]
  - PULMONARY EMBOLISM [None]
  - DRUG INEFFECTIVE [None]
